FAERS Safety Report 5092673-8 (Version None)
Quarter: 2006Q3

REPORT INFORMATION
  Report Type: 
  Country: None (occurrence: None)
  Receive Date: 20060828
  Receipt Date: 20060706
  Transmission Date: 20061208
  Serious: Yes (Hospitalization, Disabling, Other)
  Sender: FDA-Public Use
  Company Number: 2006082199

PATIENT
  Age: 49 Year
  Sex: Female

DRUGS (7)
  1. CELEBREX [Suspect]
     Indication: MUSCULOSKELETAL PAIN
     Dosage: 200 MG (200 MG, 1 IN 1 D); ORAL
     Route: 048
     Dates: start: 19980101, end: 20050101
  2. CELEBREX [Suspect]
     Indication: OSTEOARTHRITIS
     Dosage: 200 MG (200 MG, 1 IN 1 D); ORAL
     Route: 048
     Dates: start: 19980101, end: 20050101
  3. THEO-DUR [Concomitant]
  4. PROTONIX [Concomitant]
  5. THEOPHYLLINE [Concomitant]
  6. ZYRTEC [Concomitant]
  7. MONTELUKAST [Concomitant]

REACTIONS (17)
  - ABASIA [None]
  - ANTINUCLEAR ANTIBODY INCREASED [None]
  - BEDRIDDEN [None]
  - DRUG INEFFECTIVE [None]
  - FIBROMYALGIA [None]
  - GASTRIC DISORDER [None]
  - HEART RATE INCREASED [None]
  - HYPERTENSION [None]
  - IMPAIRED SELF-CARE [None]
  - IMPAIRED WORK ABILITY [None]
  - IRRITABLE BOWEL SYNDROME [None]
  - MUSCLE DISORDER [None]
  - MYALGIA [None]
  - PNEUMONIA [None]
  - PULMONARY FIBROSIS [None]
  - SCAR [None]
  - WEIGHT INCREASED [None]
